FAERS Safety Report 8349673-1 (Version None)
Quarter: 2012Q2

REPORT INFORMATION
  Report Type: 
  Country: None (occurrence: None)
  Receive Date: 20120510
  Receipt Date: 20120426
  Transmission Date: 20120825
  Serious: Yes (Death, Hospitalization, Disabling, Other)
  Sender: FDA-Public Use
  Company Number: US-MYLANLABS-2009AL001688

PATIENT
  Age: 78 Year
  Sex: Male
  Weight: 81.65 kg

DRUGS (27)
  1. ISORDIL [Concomitant]
  2. INSULIN [Concomitant]
     Dosage: 20 UNITS IN THE AM AND 6 UNITS IN THE PM
  3. ENALAPRIL MALEATE [Concomitant]
  4. VASOTEC [Concomitant]
  5. METFORMIN HCL [Concomitant]
  6. LASIX [Concomitant]
  7. ASPIRIN [Concomitant]
  8. MOTRIN [Concomitant]
  9. COUMADIN [Concomitant]
  10. DIGOXIN [Suspect]
     Indication: PULMONARY CONGESTION
     Route: 048
     Dates: start: 19990105, end: 20021113
  11. ISORDIL [Concomitant]
  12. NITROGLYCERIN [Concomitant]
  13. ASPIRIN [Concomitant]
  14. COLACE [Concomitant]
  15. ISOSORBIDE DINITRATE [Concomitant]
  16. MYLANTA [Concomitant]
  17. LABETALOL HCL [Concomitant]
  18. PROTONIX [Concomitant]
  19. ZOCOR [Concomitant]
  20. PROCARDIA /00340701/ [Concomitant]
  21. GLUCOPHAGE [Concomitant]
  22. CLONIDINE [Concomitant]
  23. SIMVASTATIN [Concomitant]
  24. NITROGLYCERIN [Concomitant]
  25. LOPRESSOR [Concomitant]
  26. HUMULIN R [Concomitant]
  27. LIPITOR [Concomitant]

REACTIONS (109)
  - ABDOMINAL PAIN UPPER [None]
  - PLEURAL EFFUSION [None]
  - NEUROPATHY PERIPHERAL [None]
  - BLEPHARITIS [None]
  - COMMUNICATION DISORDER [None]
  - PULMONARY CONGESTION [None]
  - DECREASED APPETITE [None]
  - ERYTHEMA OF EYELID [None]
  - COMPUTERISED TOMOGRAM ABDOMEN ABNORMAL [None]
  - CHEST X-RAY ABNORMAL [None]
  - POOR QUALITY SLEEP [None]
  - NEPHROLITHIASIS [None]
  - RIGHT VENTRICULAR DYSFUNCTION [None]
  - TACHYPNOEA [None]
  - PAIN [None]
  - INJURY [None]
  - LOSS OF EMPLOYMENT [None]
  - DEHYDRATION [None]
  - NECK PAIN [None]
  - DYSPNOEA [None]
  - RENAL CYST [None]
  - DEAFNESS [None]
  - PULMONARY OEDEMA [None]
  - HYPERTENSION [None]
  - PROSTATE CANCER [None]
  - WEIGHT DECREASED [None]
  - CHEST DISCOMFORT [None]
  - ABNORMAL DREAMS [None]
  - ANXIETY [None]
  - MEMORY IMPAIRMENT [None]
  - WHEEZING [None]
  - SOMNOLENCE [None]
  - EMOTIONAL DISTRESS [None]
  - CONFUSIONAL STATE [None]
  - MENTAL STATUS CHANGES [None]
  - CONSTIPATION [None]
  - GASTRITIS [None]
  - RENAL FAILURE CHRONIC [None]
  - HALLUCINATION [None]
  - SUPRAVENTRICULAR TACHYCARDIA [None]
  - ARTHRALGIA [None]
  - HYPOACUSIS [None]
  - LIVING ALONE [None]
  - FEAR OF DEATH [None]
  - DEPRESSION [None]
  - AGITATION [None]
  - SPEECH DISORDER [None]
  - VENTRICULAR EXTRASYSTOLES [None]
  - TACHYCARDIA [None]
  - PANCREATITIS [None]
  - DISEASE PROGRESSION [None]
  - INCONTINENCE [None]
  - COUGH [None]
  - EJECTION FRACTION DECREASED [None]
  - LEFT VENTRICULAR HYPERTROPHY [None]
  - ECHOCARDIOGRAM ABNORMAL [None]
  - DRUG LEVEL BELOW THERAPEUTIC [None]
  - NAUSEA [None]
  - HYPERHIDROSIS [None]
  - ESSENTIAL HYPERTENSION [None]
  - AMBLYOPIA [None]
  - STRABISMUS [None]
  - CERUMEN IMPACTION [None]
  - OSTEOARTHRITIS [None]
  - DRUG PRESCRIBING ERROR [None]
  - ANTIPHOSPHOLIPID ANTIBODIES POSITIVE [None]
  - PHYSICAL EXAMINATION ABNORMAL [None]
  - MYRINGITIS [None]
  - ELECTROCARDIOGRAM ST-T SEGMENT ABNORMAL [None]
  - ULTRASOUND SCAN ABNORMAL [None]
  - HEADACHE [None]
  - HYPOGLYCAEMIA [None]
  - DEATH [None]
  - CORONARY ARTERY DISEASE [None]
  - ARRHYTHMIA [None]
  - CARDIAC FAILURE CONGESTIVE [None]
  - ATRIAL FIBRILLATION [None]
  - GAIT DISTURBANCE [None]
  - DISORIENTATION [None]
  - SUPRAPUBIC PAIN [None]
  - CHEST PAIN [None]
  - HYPERGLYCAEMIA [None]
  - APATHY [None]
  - SENILE DEMENTIA [None]
  - ELECTROCARDIOGRAM ABNORMAL [None]
  - LABORATORY TEST ABNORMAL [None]
  - FRUSTRATION [None]
  - HEART RATE IRREGULAR [None]
  - ILL-DEFINED DISORDER [None]
  - TYPE 2 DIABETES MELLITUS [None]
  - AMNESIA [None]
  - DYSSTASIA [None]
  - MEDICAL DIET [None]
  - WALKING AID USER [None]
  - DISTURBANCE IN ATTENTION [None]
  - AFFECTIVE DISORDER [None]
  - FATIGUE [None]
  - ARTERIOSCLEROSIS [None]
  - RESPIRATORY DISTRESS [None]
  - ECONOMIC PROBLEM [None]
  - NOCTURNAL DYSPNOEA [None]
  - JOINT RANGE OF MOTION DECREASED [None]
  - JOINT INSTABILITY [None]
  - BRAIN SCAN ABNORMAL [None]
  - COGNITIVE DISORDER [None]
  - HEPATOMEGALY [None]
  - GENERALISED OEDEMA [None]
  - ELECTROCARDIOGRAM T WAVE INVERSION [None]
  - RALES [None]
